FAERS Safety Report 8859642 (Version 2)
Quarter: 2012Q4

REPORT INFORMATION
  Report Type: 
  Country: US (occurrence: US)
  Receive Date: 20121025
  Receipt Date: 20121107
  Transmission Date: 20130627
  Serious: Yes (Hospitalization, Other)
  Sender: FDA-Public Use
  Company Number: US-SANOFI-AVENTIS-2012SA075913

PATIENT
  Age: 60 Year
  Sex: Male
  Weight: 226.7 kg

DRUGS (14)
  1. LANTUS SOLOSTAR [Suspect]
     Indication: TYPE II DIABETES MELLITUS
     Dosage: Dose:10 unit(s)
     Route: 058
     Dates: start: 201111, end: 20121011
  2. SOLOSTAR [Suspect]
     Indication: TYPE II DIABETES MELLITUS
     Dates: start: 201111, end: 20121011
  3. GLUCOPHAGE [Suspect]
     Route: 065
  4. GLIPIZIDE [Concomitant]
     Route: 048
     Dates: start: 20111122
  5. AUGMENTIN [Concomitant]
     Route: 048
     Dates: start: 20111122
  6. NITROFURANTOIN [Concomitant]
     Route: 048
     Dates: start: 20111122
  7. TRIAMCINOLONE ACETONIDE [Concomitant]
     Dosage: Apply 1 application(s) twice a day by topicalroute for 10 days.
     Dates: start: 20111108
  8. PROMETHAZINE [Concomitant]
     Dosage: Take 1 tablet(s) every 4 hours by oral route as needed.
     Route: 048
     Dates: start: 20111108
  9. FUROSEMIDE [Concomitant]
     Route: 048
     Dates: start: 20110523
  10. LOVASTATIN [Concomitant]
     Dosage: TWO TABLETS BY MOUTH EVERY DAY
     Route: 048
  11. ASPIRIN [Concomitant]
     Route: 048
  12. METOPROLOL TARTRATE [Concomitant]
     Route: 048
  13. INFLUENZA VACCINE [Concomitant]
     Dates: start: 20111108
  14. GABAPENTIN [Concomitant]
     Route: 048
     Dates: start: 20110308

REACTIONS (10)
  - Cellulitis [Unknown]
  - Photosensitivity reaction [Recovered/Resolved]
  - Rash [Recovered/Resolved]
  - Dyspnoea [Recovered/Resolved]
  - Speech disorder [Recovered/Resolved]
  - Visual impairment [Recovered/Resolved]
  - Dizziness [Recovered/Resolved]
  - Dysphagia [Recovered/Resolved]
  - Nausea [Recovered/Resolved]
  - Pyrexia [Recovered/Resolved]
